FAERS Safety Report 21251642 (Version 1)
Quarter: 2022Q3

REPORT INFORMATION
  Report Type: Report from Study
  Country: IN (occurrence: IN)
  Receive Date: 20220825
  Receipt Date: 20220825
  Transmission Date: 20221027
  Serious: Yes (Other)
  Sender: FDA-Public Use
  Company Number: IN-NOVARTISPH-NVSC2022IN186360

PATIENT
  Sex: Male

DRUGS (1)
  1. SECUKINUMAB [Suspect]
     Active Substance: SECUKINUMAB
     Indication: Psoriasis
     Dosage: 150 MG, ONCE EVERY 6 WEEKS
     Route: 058

REACTIONS (9)
  - Type 2 diabetes mellitus [Unknown]
  - Hypertension [Unknown]
  - Migraine [Unknown]
  - Bundle branch block right [Unknown]
  - Dyslipidaemia [Unknown]
  - Musculoskeletal stiffness [Unknown]
  - Arthralgia [Unknown]
  - Skin lesion [Unknown]
  - Inappropriate schedule of product administration [Unknown]
